FAERS Safety Report 7329537-2 (Version None)
Quarter: 2011Q1

REPORT INFORMATION
  Report Type: 
  Country: None (occurrence: None)
  Receive Date: 20110303
  Receipt Date: 20110301
  Transmission Date: 20110831
  Serious: Yes (Other)
  Sender: FDA-Public Use
  Company Number: CH-PFIZER INC-2011044033

PATIENT
  Age: 81 Year
  Sex: Male

DRUGS (15)
  1. KLACID [Interacting]
     Indication: LOBAR PNEUMONIA
     Dosage: 500 MG, 2X/DAY
     Route: 048
     Dates: start: 20110202, end: 20110207
  2. TRILEPTAL [Interacting]
     Dosage: 300 MG 3X/DAY PLUS 150 MG 1X/DAY
     Route: 048
     Dates: start: 20100701
  3. ARIXTRA [Concomitant]
     Dosage: 2.5 MG, 1X/DAY
  4. TEMESTA [Concomitant]
     Dosage: 0.5 MG, AS NEEDED
  5. EFFEXOR [Suspect]
     Dosage: 75 MG, 1X/DAY
     Route: 048
     Dates: start: 20100601
  6. TEMGESIC ^ESSEX PHARMA^ [Concomitant]
     Dosage: 0.2 MG, AS NEEDED
  7. FOSAMAX [Concomitant]
     Dosage: 70 MG, WEEKLY
  8. MOTILIUM [Concomitant]
     Dosage: 10 MG, AS NEEDED
  9. ASPIRIN [Concomitant]
     Dosage: 100 MG, 1X/DAY
  10. LYRICA [Concomitant]
     Dosage: 150 MG, 3X/DAY
  11. DAFALGAN [Concomitant]
     Dosage: 1 G, 3X/DAY
  12. NEXIUM [Concomitant]
     Dosage: 40 MG, 1X/DAY
  13. CALCIMAGON-D3 [Concomitant]
     Dosage: 500 MG, 2X/DAY
  14. APROVEL [Concomitant]
     Dosage: 300 MG, 1X/DAY
  15. AMOXICILLIN + CLAVULANATE POTASSIUM [Concomitant]
     Indication: LOBAR PNEUMONIA
     Dosage: UNK
     Dates: end: 20110212

REACTIONS (8)
  - HYPERTONIA [None]
  - DRUG LEVEL INCREASED [None]
  - VOMITING [None]
  - CONFUSIONAL STATE [None]
  - DRUG INTERACTION [None]
  - NAUSEA [None]
  - DIARRHOEA [None]
  - CHILLS [None]
